FAERS Safety Report 4697329-9 (Version None)
Quarter: 2005Q2

REPORT INFORMATION
  Report Type: 
  Country: None (occurrence: None)
  Receive Date: 20050620
  Receipt Date: 20050609
  Transmission Date: 20051028
  Serious: Yes (Hospitalization)
  Sender: FDA-Public Use
  Company Number: 2005087203

PATIENT
  Age: 88 Year
  Sex: Female
  Weight: 60 kg

DRUGS (5)
  1. NEURONTIN [Suspect]
     Indication: PAIN
     Dosage: (300 MG ), ORAL
     Route: 048
     Dates: start: 20050519, end: 20050523
  2. DF118 (DIHYDROCODEINE BITARTRATE) [Suspect]
     Indication: PAIN
     Dosage: (40 MG), ORAL
     Route: 048
     Dates: start: 20050519, end: 20050523
  3. DIAZEPAM [Concomitant]
  4. KETOPROFEN [Concomitant]
  5. GENTAMICIN [Concomitant]

REACTIONS (3)
  - DRUG INTERACTION [None]
  - POST PROCEDURAL COMPLICATION [None]
  - SOMNOLENCE [None]
